FAERS Safety Report 22100553 (Version 1)
Quarter: 2023Q1

REPORT INFORMATION
  Report Type: Spontaneous
  Country: US (occurrence: None)
  Receive Date: 20230316
  Receipt Date: 20230316
  Transmission Date: 20230417
  Serious: Yes (Other)
  Sender: FDA-Public Use
  Company Number: 2023A057701

PATIENT
  Age: 86 Year
  Sex: Female
  Weight: 72.6 kg

DRUGS (2)
  1. SYMBICORT [Suspect]
     Active Substance: BUDESONIDE\FORMOTEROL FUMARATE DIHYDRATE
     Indication: Asthma
     Dosage: 160-4.5 2 PUFFS TWICE A DAY 160.0UG UNKNOWN
     Route: 055
     Dates: start: 202301
  2. SYMBICORT [Suspect]
     Active Substance: BUDESONIDE\FORMOTEROL FUMARATE DIHYDRATE
     Indication: Chronic obstructive pulmonary disease
     Dosage: 160-4.5 2 PUFFS TWICE A DAY 160.0UG UNKNOWN
     Route: 055
     Dates: start: 202301

REACTIONS (7)
  - Clavicle fracture [Not Recovered/Not Resolved]
  - Mental disorder [Unknown]
  - Bone pain [Not Recovered/Not Resolved]
  - Device delivery system issue [Unknown]
  - Intentional product misuse [Unknown]
  - Wrong technique in device usage process [Unknown]
  - Drug dose omission by device [Unknown]

NARRATIVE: CASE EVENT DATE: 20230307
